FAERS Safety Report 21926976 (Version 2)
Quarter: 2023Q2

REPORT INFORMATION
  Report Type: Spontaneous
  Country: CA (occurrence: CA)
  Receive Date: 20230130
  Receipt Date: 20230518
  Transmission Date: 20230721
  Serious: Yes (Death, Other)
  Sender: FDA-Public Use
  Company Number: CA-PFIZER INC-202300040938

PATIENT
  Age: 69 Year
  Sex: Male

DRUGS (2)
  1. XELJANZ [Suspect]
     Active Substance: TOFACITINIB CITRATE
     Indication: Rheumatoid arthritis
     Dosage: 5MG 2X/DAY
     Route: 048
     Dates: start: 2013
  2. CELEBREX [Concomitant]
     Active Substance: CELECOXIB
     Dosage: AS REQUIRED
     Route: 065

REACTIONS (2)
  - Death [Fatal]
  - Foot fracture [Not Recovered/Not Resolved]

NARRATIVE: CASE EVENT DATE: 20230511
